FAERS Safety Report 7515035-X (Version None)
Quarter: 2011Q2

REPORT INFORMATION
  Report Type: 
  Country: None (occurrence: None)
  Receive Date: 20110601
  Receipt Date: 20110519
  Transmission Date: 20111010
  Serious: Yes (Hospitalization)
  Sender: FDA-Public Use
  Company Number: PHFR2011GB03158

PATIENT
  Sex: Male

DRUGS (2)
  1. CLOZARIL [Suspect]
     Indication: SCHIZOPHRENIA
     Dosage: 250MG MORN 500MG NIGHT
     Route: 048
     Dates: start: 20060509
  2. CLOZARIL [Suspect]
     Dosage: 375 MG, QD
     Route: 048

REACTIONS (7)
  - RENAL FAILURE ACUTE [None]
  - ANTIPSYCHOTIC DRUG LEVEL INCREASED [None]
  - MULTIPLE MYELOMA [None]
  - SPINAL FRACTURE [None]
  - BLOOD CREATININE INCREASED [None]
  - SEPSIS [None]
  - HAEMOGLOBIN DECREASED [None]
